FAERS Safety Report 15981747 (Version 2)
Quarter: 2019Q1

REPORT INFORMATION
  Report Type: Spontaneous
  Country: JP (occurrence: JP)
  Receive Date: 20190219
  Receipt Date: 20190225
  Transmission Date: 20190418
  Serious: Yes (Other)
  Sender: FDA-Public Use
  Company Number: JP-PFIZER INC-2019069469

PATIENT
  Age: 46 Year
  Sex: Female

DRUGS (5)
  1. LEVOLEUCOVORIN CALCIUM. [Concomitant]
     Active Substance: LEVOLEUCOVORIN CALCIUM
     Dosage: 200 MG/M2, DAY 1
  2. 5-FU [FLUOROURACIL] [Concomitant]
     Active Substance: FLUOROURACIL
     Dosage: 2400 MG/M2, DAY 1-2
  3. OXALIPLATIN. [Suspect]
     Active Substance: OXALIPLATIN
     Dosage: 85 MG/M2, DAY 1
  4. 5-FU [FLUOROURACIL] [Concomitant]
     Active Substance: FLUOROURACIL
     Dosage: 400 MG/M2, DAY 1
  5. PANITUMUMAB [Concomitant]
     Active Substance: PANITUMUMAB
     Dosage: 6 MG/KG, DAY 1

REACTIONS (3)
  - Splenomegaly [Unknown]
  - Cytopenia [Recovered/Resolved]
  - Portal hypertension [Unknown]
